FAERS Safety Report 8290056-0 (Version None)
Quarter: 2012Q2

REPORT INFORMATION
  Report Type: 
  Country: None (occurrence: None)
  Receive Date: 20120417
  Receipt Date: 20120413
  Transmission Date: 20120825
  Serious: Yes (Other)
  Sender: FDA-Public Use
  Company Number: US-PFIZER INC-2012061637

PATIENT
  Sex: Female

DRUGS (1)
  1. GUAIFENESIN [Suspect]
     Dosage: UNK
     Dates: start: 20120101

REACTIONS (3)
  - DYSPNOEA [None]
  - INSOMNIA [None]
  - PHARYNGEAL OEDEMA [None]
